FAERS Safety Report 24979215 (Version 1)
Quarter: 2025Q1

REPORT INFORMATION
  Report Type: Spontaneous
  Country: US (occurrence: US)
  Receive Date: 20250218
  Receipt Date: 20250218
  Transmission Date: 20250409
  Serious: No
  Sender: AMGEN
  Company Number: US-AMGEN-USASP2025030266

PATIENT
  Age: 42 Year
  Sex: Female

DRUGS (4)
  1. PREDNISONE [Suspect]
     Active Substance: PREDNISONE
     Indication: Lung transplant
     Dosage: 5 MILLIGRAM, QD
     Route: 065
  2. SEMAGLUTIDE [Concomitant]
     Active Substance: SEMAGLUTIDE
     Route: 065
  3. DULAGLUTIDE [Concomitant]
     Active Substance: DULAGLUTIDE
     Route: 065
  4. TIRZEPATIDE [Concomitant]
     Active Substance: TIRZEPATIDE
     Route: 065

REACTIONS (2)
  - Weight increased [Unknown]
  - Hyperglycaemia [Unknown]
